FAERS Safety Report 9321072 (Version 1)
Quarter: 2013Q2

REPORT INFORMATION
  Report Type: Spontaneous
  Country: US (occurrence: None)
  Receive Date: 20130530
  Receipt Date: 20130530
  Transmission Date: 20140414
  Serious: Yes (Other)
  Sender: FDA-Public Use
  Company Number: None

PATIENT
  Age: 58 Year
  Sex: Female
  Weight: 56.7 kg

DRUGS (1)
  1. TOPIRAMATE 50 MG [Suspect]
     Indication: MIGRAINE
     Route: 048
     Dates: start: 20130202, end: 20130502

REACTIONS (4)
  - Product substitution issue [None]
  - No therapeutic response [None]
  - Irritability [None]
  - Insomnia [None]
